FAERS Safety Report 9659689 (Version 2)
Quarter: 2013Q4

REPORT INFORMATION
  Report Type: Report from Study
  Country: US (occurrence: US)
  Receive Date: 20131031
  Receipt Date: 20131106
  Transmission Date: 20140711
  Serious: Yes (Hospitalization)
  Sender: FDA-Public Use
  Company Number: US-JNJFOC-20131015595

PATIENT
  Age: 19 Year
  Sex: Female
  Weight: 65.8 kg

DRUGS (13)
  1. REMICADE [Suspect]
     Indication: COLITIS ULCERATIVE
     Route: 042
     Dates: start: 20090601, end: 20130921
  2. HYDROCORTISONE [Concomitant]
     Route: 065
  3. IMODIUM [Concomitant]
     Route: 065
  4. FLOVENT [Concomitant]
     Route: 061
  5. ROXICODONE [Concomitant]
     Route: 065
  6. IBUPROFEN [Concomitant]
     Route: 065
  7. PRILOSEC [Concomitant]
     Route: 065
  8. CIPROFLOXACIN [Concomitant]
     Route: 065
  9. ZOFRAN [Concomitant]
     Route: 065
  10. DEBROX [Concomitant]
     Route: 065
  11. BENADRYL [Concomitant]
     Route: 065
  12. ISOVUE [Concomitant]
     Route: 065
  13. PROTONIX [Concomitant]
     Route: 065

REACTIONS (1)
  - Gastroenteritis [Recovered/Resolved]
